FAERS Safety Report 8402223 (Version 5)
Quarter: 2013Q3

REPORT INFORMATION
  Report Type: Report from Study
  Country: DE (occurrence: DE)
  Receive Date: 20120213
  Receipt Date: 20130701
  Transmission Date: 20140515
  Serious: Yes (Death)
  Sender: FDA-Public Use
  Company Number: DE-AMGEN-DEUNI2012008369

PATIENT
  Age: 47 Year
  Sex: Female

DRUGS (1)
  1. ROMIPLOSTIM [Suspect]
     Indication: IMMUNE THROMBOCYTOPENIC PURPURA
     Dosage: 200 MUG, QWK
     Route: 058
     Dates: start: 20100811, end: 20120206

REACTIONS (1)
  - Pulmonary embolism [Fatal]
